FAERS Safety Report 5323835-X (Version None)
Quarter: 2007Q2

REPORT INFORMATION
  Report Type: 
  Country: None (occurrence: None)
  Receive Date: 20070514
  Receipt Date: 20070510
  Transmission Date: 20071010
  Serious: Yes (Hospitalization)
  Sender: FDA-Public Use
  Company Number: B0470371A

PATIENT
  Age: 58 Year
  Sex: Female

DRUGS (4)
  1. AUGMENTIN '125' [Suspect]
     Dosage: 1G TWICE PER DAY
     Route: 048
     Dates: start: 20070417, end: 20070420
  2. BRONCHOKOD [Suspect]
     Dosage: 15ML THREE TIMES PER DAY
     Route: 048
     Dates: start: 20070417, end: 20070420
  3. RHINOFLUIMUCIL [Suspect]
     Dosage: 1UNIT THREE TIMES PER DAY
     Route: 055
     Dates: start: 20070417, end: 20070420
  4. DOLIPRANE [Concomitant]
     Route: 048
     Dates: start: 20070417

REACTIONS (2)
  - GENERALISED ERYTHEMA [None]
  - RASH MACULO-PAPULAR [None]
